FAERS Safety Report 8306889-8 (Version None)
Quarter: 2012Q2

REPORT INFORMATION
  Report Type: 
  Country: None (occurrence: None)
  Receive Date: 20120424
  Receipt Date: 20120417
  Transmission Date: 20120825
  Serious: Yes (Other)
  Sender: FDA-Public Use
  Company Number: US-UCBSA-055186

PATIENT
  Sex: Female

DRUGS (2)
  1. CIMZIA [Suspect]
  2. ATARAX [Concomitant]
     Dosage: UNKNOWN DOSE

REACTIONS (1)
  - SYSTEMIC LUPUS ERYTHEMATOSUS [None]
